FAERS Safety Report 19639070 (Version 2)
Quarter: 2022Q2

REPORT INFORMATION
  Report Type: Spontaneous
  Country: US (occurrence: US)
  Receive Date: 20210729
  Receipt Date: 20220403
  Transmission Date: 20220721
  Serious: No
  Sender: FDA-Public Use
  Company Number: US-SA-SAC20210727000009

PATIENT
  Sex: Female

DRUGS (10)
  1. DUPIXENT [Suspect]
     Active Substance: DUPILUMAB
     Indication: Dermatitis atopic
     Dosage: 200 MG, QOW
     Route: 058
  2. MOMETASONE FUROATE [Concomitant]
     Active Substance: MOMETASONE FUROATE
  3. TRIAMCINOLONE ACETONIDE [Concomitant]
     Active Substance: TRIAMCINOLONE ACETONIDE
  4. EUCRISA [Concomitant]
     Active Substance: CRISABOROLE
  5. MONTELUKAST SODIUM [Concomitant]
     Active Substance: MONTELUKAST SODIUM
  6. MUPIROCIN [Concomitant]
     Active Substance: MUPIROCIN
  7. ELIDEL [Concomitant]
     Active Substance: PIMECROLIMUS
  8. FLUTICASONE PROPIONATE [Concomitant]
     Active Substance: FLUTICASONE PROPIONATE
  9. CETIRIZINE HYDROCHLORIDE [Concomitant]
     Active Substance: CETIRIZINE HYDROCHLORIDE
  10. HYDROCORTISONE [Concomitant]
     Active Substance: HYDROCORTISONE

REACTIONS (6)
  - Drug hypersensitivity [Unknown]
  - Skin burning sensation [Unknown]
  - Erythema [Unknown]
  - Rash [Unknown]
  - Product dose omission issue [Unknown]
  - Product use issue [Unknown]
